FAERS Safety Report 8872339 (Version 1)
Quarter: 2012Q4

REPORT INFORMATION
  Report Type: Spontaneous
  Country: US (occurrence: None)
  Receive Date: 20121025
  Receipt Date: 20121025
  Transmission Date: 20130627
  Serious: Yes (Hospitalization)
  Sender: FDA-Public Use
  Company Number: UTC0-024126

PATIENT
  Age: 65 Year
  Sex: Female
  Weight: 61.36 kg

DRUGS (4)
  1. REMODULIN [Suspect]
     Indication: PULMONARY HYPERTENSION SECONDARY
     Dosage: (0.102 ug/kg, 1 in 1 min)
     Route: 058
     Dates: start: 20090901
  2. REMODULIN [Suspect]
     Indication: CHRONIC PULMONARY HEART DISEASE
     Dosage: (0.102 ug/kg, 1 in 1 min)
     Route: 058
     Dates: start: 20090901
  3. TRACLEER (BOSENTAN)(UNKNOWN) [Concomitant]
  4. COUMADIN (WARFARIN SODIUM)(UNKNOWN) [Concomitant]

REACTIONS (5)
  - Infusion site haemorrhage [None]
  - Infusion site cellulitis [None]
  - Infusion site pain [None]
  - Infusion site warmth [None]
  - International normalised ratio increased [None]
